FAERS Safety Report 22400406 (Version 1)
Quarter: 2023Q2

REPORT INFORMATION
  Report Type: Spontaneous
  Country: IT (occurrence: IT)
  Receive Date: 20230602
  Receipt Date: 20230602
  Transmission Date: 20230722
  Serious: Yes (Other)
  Sender: FDA-Public Use
  Company Number: IT-002147023-NVSC2023IT113946

PATIENT

DRUGS (3)
  1. SORAFENIB [Suspect]
     Active Substance: SORAFENIB
     Indication: Stem cell transplant
     Dosage: UNK
     Route: 048
  2. SORAFENIB [Suspect]
     Active Substance: SORAFENIB
     Indication: Acute myeloid leukaemia
  3. SORAFENIB [Suspect]
     Active Substance: SORAFENIB
     Indication: FLT3 gene mutation

REACTIONS (2)
  - Hepatotoxicity [Recovered/Resolved]
  - Product use in unapproved indication [Unknown]
